FAERS Safety Report 7964300-0 (Version None)
Quarter: 2011Q4

REPORT INFORMATION
  Report Type: 
  Country: None (occurrence: None)
  Receive Date: 20111208
  Receipt Date: 20111011
  Transmission Date: 20120403
  Serious: Yes (Hospitalization, Other)
  Sender: FDA-Public Use
  Company Number: US-ASTELLAS-2011US008162

PATIENT
  Sex: Female
  Weight: 76 kg

DRUGS (13)
  1. DOXYCYCLINE [Concomitant]
     Indication: PRODUCT USED FOR UNKNOWN INDICATION
     Dosage: 100 MG, BID
     Route: 048
  2. MORPHINE [Concomitant]
     Indication: PRODUCT USED FOR UNKNOWN INDICATION
     Dosage: 15-30 MG, PRN, Q4 HOURS
     Route: 065
  3. ONDANSETRON [Concomitant]
     Indication: PRODUCT USED FOR UNKNOWN INDICATION
     Dosage: 8 MG, PRN, Q8 HOURS
     Route: 048
  4. ERLOTINIB HYDROCHLORIDE [Suspect]
     Indication: PANCREATIC CARCINOMA
     Dosage: 150 MG, DAY 2, 5, 9, 12, 16,26 CYCLIC
     Route: 048
     Dates: start: 20110915, end: 20110922
  5. OPIOIDS [Suspect]
     Indication: PRODUCT USED FOR UNKNOWN INDICATION
     Dosage: UNK
     Route: 065
  6. COLACE [Concomitant]
     Indication: PRODUCT USED FOR UNKNOWN INDICATION
     Dosage: 100 MG, BID
     Route: 048
  7. MEGESTROL ACETATE [Concomitant]
     Indication: PRODUCT USED FOR UNKNOWN INDICATION
     Dosage: 800 MG, UID/QD
     Route: 048
  8. LORAZEPAM [Suspect]
     Indication: PRODUCT USED FOR UNKNOWN INDICATION
     Dosage: 0.5-1 MG, PRN, Q4 HOURS
     Route: 048
  9. COMPAZINE [Concomitant]
     Indication: PRODUCT USED FOR UNKNOWN INDICATION
     Dosage: 10 MG, PRN, TID
     Route: 048
  10. MORPHINE SULFATE [Concomitant]
     Indication: PRODUCT USED FOR UNKNOWN INDICATION
     Dosage: 60 MG, PRN, Q8 HOURS
     Route: 048
  11. VITAMIN D [Concomitant]
     Indication: PRODUCT USED FOR UNKNOWN INDICATION
     Dosage: 1000 DF, UNKNOWN/D
     Route: 048
  12. LEVOTHYROXINE SODIUM [Concomitant]
     Indication: PRODUCT USED FOR UNKNOWN INDICATION
     Dosage: 100 UG, BID
     Route: 048
  13. GEMCITABINE [Suspect]
     Indication: PANCREATIC CARCINOMA
     Dosage: 18560 MG, ON DAY 1, 8 AND 15 CYCLIC
     Route: 042
     Dates: start: 20110915, end: 20110922

REACTIONS (13)
  - MENTAL STATUS CHANGES [None]
  - MUCOSAL DRYNESS [None]
  - LUNG CONSOLIDATION [None]
  - OCULAR ICTERUS [None]
  - INAPPROPRIATE SCHEDULE OF DRUG ADMINISTRATION [None]
  - HAEMORRHAGE [None]
  - HAEMOGLOBIN DECREASED [None]
  - TENDERNESS [None]
  - DECREASED APPETITE [None]
  - INCORRECT DOSE ADMINISTERED [None]
  - CONTUSION [None]
  - HYPONATRAEMIA [None]
  - OEDEMA PERIPHERAL [None]
